FAERS Safety Report 5233105-6 (Version None)
Quarter: 2007Q1

REPORT INFORMATION
  Report Type: 
  Country: None (occurrence: None)
  Receive Date: 20070207
  Receipt Date: 20070131
  Transmission Date: 20070707
  Serious: Yes (Other)
  Sender: FDA-Public Use
  Company Number: AT-ABBOTT-07P-009-0357764-00

PATIENT
  Sex: Female
  Weight: 58 kg

DRUGS (3)
  1. KLACID UNO TABLETS [Suspect]
     Indication: PNEUMONIA
     Route: 048
     Dates: start: 20070102, end: 20070104
  2. DIPYRONE TAB [Concomitant]
     Indication: DRUG USE FOR UNKNOWN INDICATION
  3. AMBROXOL HYDROCHLORIDE [Concomitant]
     Indication: DRUG USE FOR UNKNOWN INDICATION

REACTIONS (3)
  - ERYTHEMA [None]
  - EYELID OEDEMA [None]
  - LIP OEDEMA [None]
